FAERS Safety Report 5559539-8 (Version None)
Quarter: 2007Q4

REPORT INFORMATION
  Report Type: 
  Country: None (occurrence: None)
  Receive Date: 20071214
  Receipt Date: 20071004
  Transmission Date: 20080405
  Serious: No
  Sender: FDA-Public Use
  Company Number: US-ABBOTT-07P-163-0419853-00

PATIENT
  Sex: Female
  Weight: 58.112 kg

DRUGS (5)
  1. HUMIRA [Suspect]
     Indication: CROHN'S DISEASE
     Route: 058
     Dates: start: 20070701
  2. HUMIRA [Suspect]
     Route: 058
  3. HUMIRA [Suspect]
     Route: 058
  4. PSEUDOEPHEDRINE HYDROCHLORIDE [Concomitant]
     Indication: SEASONAL ALLERGY
  5. LORATADINE [Concomitant]
     Indication: SEASONAL ALLERGY

REACTIONS (8)
  - ACNE [None]
  - DRY MOUTH [None]
  - FOOD INTOLERANCE [None]
  - PHARYNGEAL OEDEMA [None]
  - PHARYNGOLARYNGEAL PAIN [None]
  - SALIVARY GLAND ENLARGEMENT [None]
  - STOMATITIS [None]
  - THROAT IRRITATION [None]
